FAERS Safety Report 8612035-3 (Version None)
Quarter: 2012Q3

REPORT INFORMATION
  Report Type: 
  Country: None (occurrence: None)
  Receive Date: 20120822
  Receipt Date: 20120815
  Transmission Date: 20120928
  Serious: Yes (Hospitalization)
  Sender: FDA-Public Use
  Company Number: IE-PFIZER INC-2012199605

PATIENT
  Age: 2 Year
  Sex: Female

DRUGS (2)
  1. GENOTROPIN [Suspect]
     Dosage: 0.3 MG, UNK
  2. GENOTROPIN [Suspect]
     Dosage: 0.15 MG, UNK

REACTIONS (3)
  - ABDOMINAL DISTENSION [None]
  - EAR INFECTION [None]
  - DIABETES INSIPIDUS [None]
